FAERS Safety Report 25775971 (Version 2)
Quarter: 2025Q4

REPORT INFORMATION
  Report Type: Report from Study
  Country: US (occurrence: US)
  Receive Date: 20250909
  Receipt Date: 20251010
  Transmission Date: 20260118
  Serious: Yes (Hospitalization)
  Sender: ABBVIE
  Company Number: US-ABBVIE-6445287

PATIENT
  Age: 73 Year
  Sex: Female
  Weight: 111.13 kg

DRUGS (8)
  1. RINVOQ [Suspect]
     Active Substance: UPADACITINIB
     Indication: Colitis ulcerative
     Dosage: FORM STRENGTH : 30 MILLIGRAM
     Route: 048
     Dates: start: 2023, end: 202506
  2. RINVOQ [Suspect]
     Active Substance: UPADACITINIB
     Indication: Colitis ulcerative
     Dosage: FORM STRENGTH : 30 MILLIGRAM
     Route: 048
     Dates: start: 20251002
  3. ATORVASTATIN [Concomitant]
     Active Substance: ATORVASTATIN
     Indication: Blood cholesterol
  4. MONTELUKAST [Concomitant]
     Active Substance: MONTELUKAST
     Indication: Seasonal allergy
     Dosage: (SINGULAIR)
  5. GABAPENTIN [Concomitant]
     Active Substance: GABAPENTIN
     Indication: Sleep disorder therapy
  6. XYZAL [Concomitant]
     Active Substance: LEVOCETIRIZINE DIHYDROCHLORIDE
     Indication: Seasonal allergy
  7. FAMOTIDINE [Concomitant]
     Active Substance: FAMOTIDINE
     Indication: Hyperchlorhydria
  8. HYDROCHLOROTHIAZIDE\LOSARTAN [Concomitant]
     Active Substance: HYDROCHLOROTHIAZIDE\LOSARTAN
     Indication: Blood pressure measurement

REACTIONS (6)
  - Essential tremor [Recovering/Resolving]
  - Intervertebral disc protrusion [Recovered/Resolved]
  - Procedural pain [Recovered/Resolved]
  - Procedural pain [Recovered/Resolved]
  - Musculoskeletal disorder [Recovering/Resolving]
  - Procedural pain [Recovered/Resolved]

NARRATIVE: CASE EVENT DATE: 20250409
